FAERS Safety Report 12249169 (Version 1)
Quarter: 2016Q2

REPORT INFORMATION
  Report Type: Spontaneous
  Country: JP (occurrence: JP)
  Receive Date: 20160408
  Receipt Date: 20160408
  Transmission Date: 20160815
  Serious: Yes (Other)
  Sender: FDA-Public Use
  Company Number: JP-TEVA-649133ISR

PATIENT
  Age: 73 Year
  Sex: Male

DRUGS (2)
  1. CYTARABINE. [Suspect]
     Active Substance: CYTARABINE
     Indication: ACUTE MYELOID LEUKAEMIA
     Dosage: 20 MG/M2 ON DAYS 1 TO 35 FOLLOWED BY CONSOLIDATION THERAPY
     Route: 065
  2. FILGRASTIM [Suspect]
     Active Substance: FILGRASTIM
     Indication: ACUTE MYELOID LEUKAEMIA
     Dosage: 300MICROG ON DAYS 1 TO 35 FOLLOWED BY CONSOLIDATION THERAPY
     Route: 065

REACTIONS (1)
  - Myelodysplastic syndrome [Unknown]
